FAERS Safety Report 6566449-6 (Version None)
Quarter: 2010Q1

REPORT INFORMATION
  Report Type: 
  Country: None (occurrence: None)
  Receive Date: 20100202
  Receipt Date: 20100128
  Transmission Date: 20100710
  Serious: Yes (Death, Hospitalization, Other)
  Sender: FDA-Public Use
  Company Number: PHHY2009CA50197

PATIENT
  Age: 59 Year
  Sex: Male

DRUGS (4)
  1. CYCLOSPORINE [Suspect]
     Indication: RENAL TRANSPLANT
     Dosage: UNK
     Route: 048
     Dates: start: 19920101
  2. AZATHIOPRINE [Suspect]
     Indication: RENAL TRANSPLANT
     Dosage: UNK
     Dates: start: 19920101, end: 19960101
  3. PREDNISONE [Suspect]
     Indication: RENAL TRANSPLANT
     Dosage: UNK
     Dates: start: 19920101
  4. MYCOPHENOLATE MOFETIL [Concomitant]
     Indication: RENAL TRANSPLANT
     Dosage: UNK
     Dates: start: 19960101

REACTIONS (11)
  - CHRONIC ALLOGRAFT NEPHROPATHY [None]
  - KIDNEY TRANSPLANT REJECTION [None]
  - MYCOSIS FUNGOIDES [None]
  - MYOCARDIAL INFARCTION [None]
  - OPEN WOUND [None]
  - PAIN [None]
  - PANNICULITIS [None]
  - PERIPHERAL T-CELL LYMPHOMA UNSPECIFIED RECURRENT [None]
  - RADIOTHERAPY [None]
  - RENAL IMPAIRMENT [None]
  - SKIN LESION [None]
